FAERS Safety Report 19919612 (Version 1)
Quarter: 2021Q4

REPORT INFORMATION
  Report Type: Spontaneous
  Country: NL (occurrence: NL)
  Receive Date: 20211005
  Receipt Date: 20211005
  Transmission Date: 20220303
  Serious: Yes (Hospitalization, Other)
  Sender: FDA-Public Use
  Company Number: None

PATIENT
  Sex: Female

DRUGS (3)
  1. MECLOZINE DIHYDROCHLORIDE [Suspect]
     Active Substance: MECLOZINE DIHYDROCHLORIDE
     Indication: Foetal exposure during pregnancy
     Dosage: MATERNAL DOSE: 1 DF, Q12H (2X DAAGS)
     Route: 063
     Dates: start: 20210902, end: 20210904
  2. TRAMADOL [Suspect]
     Active Substance: TRAMADOL
     Indication: Foetal exposure during pregnancy
     Dosage: MATERNAL DOSE: 1 DF, Q8H (3X DAAGS)
     Route: 065
  3. BUPRENORPHINE [Suspect]
     Active Substance: BUPRENORPHINE
     Indication: Foetal exposure during pregnancy
     Dosage: MATERNAL DOSE: 1 DF (ZO NODIG 8X DAAGS)
     Route: 063
     Dates: start: 20210901, end: 20210904

REACTIONS (4)
  - Oxygen saturation decreased [Unknown]
  - Infantile apnoea [Unknown]
  - Somnolence neonatal [Unknown]
  - Exposure via breast milk [Unknown]
